FAERS Safety Report 6603755-0 (Version None)
Quarter: 2010Q1

REPORT INFORMATION
  Report Type: 
  Country: None (occurrence: None)
  Receive Date: 20100226
  Receipt Date: 20090119
  Transmission Date: 20100710
  Serious: No
  Sender: FDA-Public Use
  Company Number: A0764180A

PATIENT
  Age: 52 Year
  Sex: Male

DRUGS (5)
  1. LAMICTAL CD [Suspect]
     Indication: BIPOLAR DISORDER
     Dosage: 100MG TWICE PER DAY
     Route: 048
     Dates: start: 20050101, end: 20050101
  2. HALDOL [Concomitant]
  3. KLONOPIN [Concomitant]
  4. TRICOR [Concomitant]
  5. ACCURETIC [Concomitant]

REACTIONS (1)
  - RASH [None]
